FAERS Safety Report 18779731 (Version 3)
Quarter: 2022Q3

REPORT INFORMATION
  Report Type: Report from Study
  Country: FR (occurrence: None)
  Receive Date: 20210125
  Receipt Date: 20220818
  Transmission Date: 20221026
  Serious: Yes (Death, Hospitalization, Other)
  Sender: FDA-Public Use
  Company Number: FR-ROCHE-2753783

PATIENT
  Age: 61 Year
  Sex: Female

DRUGS (15)
  1. ATEZOLIZUMAB [Suspect]
     Active Substance: ATEZOLIZUMAB
     Indication: Ovarian cancer
     Dosage: FREQUENCY EVERY CYCLICAL.?ON 26/JUN/2018, SHE RECEIVED MOST RECENT DOSE OF ATEZOLIZUMAB PRIOR TO EVE
     Route: 041
     Dates: start: 20170918, end: 20180717
  2. ATEZOLIZUMAB [Suspect]
     Active Substance: ATEZOLIZUMAB
     Dosage: ON 10/JAN/2018, SHE RECEIVED MOST RECENT DOSE OF ATEZOLIZUMAB.
     Route: 042
     Dates: start: 20170917, end: 20180124
  3. ATEZOLIZUMAB [Suspect]
     Active Substance: ATEZOLIZUMAB
     Route: 042
     Dates: start: 20170918, end: 20180515
  4. BEVACIZUMAB [Suspect]
     Active Substance: BEVACIZUMAB
     Indication: Ovarian cancer
     Dosage: FREQUENCY EVERY CYCLICAL.?ON 26/JUN/2018, SHE RECEIVED MOST RECENT DOSE OF BEVACIZUMAB PRIOR TO EVEN
     Route: 042
     Dates: start: 20170918, end: 20180717
  5. BEVACIZUMAB [Suspect]
     Active Substance: BEVACIZUMAB
     Route: 042
     Dates: start: 20170917, end: 20180110
  6. BEVACIZUMAB [Suspect]
     Active Substance: BEVACIZUMAB
     Route: 042
     Dates: start: 20170918, end: 20180515
  7. CARBOPLATIN [Suspect]
     Active Substance: CARBOPLATIN
     Indication: Ovarian cancer
     Dosage: FREQUENCY EVERY CYCLICAL.?ON 10/JAN/2018, SHE RECEIVED MOST RECENT DOSE OF CARBOPLATIN PRIOR TO EVEN
     Route: 042
     Dates: start: 20170918
  8. CARBOPLATIN [Suspect]
     Active Substance: CARBOPLATIN
     Route: 042
     Dates: start: 20170917, end: 20180110
  9. DOXORUBICIN [Suspect]
     Active Substance: DOXORUBICIN
     Indication: Ovarian cancer
     Dosage: FREQUENCY EVERY CYCLICAL.?ON 10/JAN/2018, SHE RECEIVED MOST RECENT DOSE OF DOXORUBICIN HYDROCHLORIDE
     Route: 042
     Dates: start: 20170918
  10. DOXORUBICIN [Suspect]
     Active Substance: DOXORUBICIN
     Indication: Ovarian cancer
     Route: 042
     Dates: start: 20170917, end: 20180110
  11. DOXORUBICIN [Suspect]
     Active Substance: DOXORUBICIN
     Route: 042
     Dates: start: 20170918
  12. LEVOTHYROXINE [Suspect]
     Active Substance: LEVOTHYROXINE
     Indication: Product used for unknown indication
     Route: 048
  13. BISOPROLOL [Concomitant]
     Active Substance: BISOPROLOL
     Route: 048
  14. LEVOTHYROXINE [Concomitant]
     Active Substance: LEVOTHYROXINE
  15. PIPERAZINE [Concomitant]
     Active Substance: PIPERAZINE

REACTIONS (9)
  - Cardiac arrest [Fatal]
  - Loss of consciousness [Fatal]
  - Renal failure [Fatal]
  - Hypercalcaemia [Fatal]
  - Dermatitis bullous [Recovered/Resolved]
  - Hypothyroidism [Unknown]
  - Fatigue [Recovered/Resolved]
  - Acute kidney injury [Recovered/Resolved]
  - Vomiting [Recovered/Resolved]

NARRATIVE: CASE EVENT DATE: 20180124
